FAERS Safety Report 20091084 (Version 1)
Quarter: 2021Q4

REPORT INFORMATION
  Report Type: Spontaneous
  Country: IT (occurrence: IT)
  Receive Date: 20211119
  Receipt Date: 20211119
  Transmission Date: 20220303
  Serious: Yes (Other)
  Sender: FDA-Public Use
  Company Number: IT-ALFASIGMA-2021.18343

PATIENT
  Age: 57 Year
  Sex: Male

DRUGS (8)
  1. ACYCLOVIR [Suspect]
     Active Substance: ACYCLOVIR
     Indication: Graft versus host disease
     Dosage: UNK FREQUENCY AND DOSAGE UNKNOWN
     Route: 065
  2. POSACONAZOLE [Suspect]
     Active Substance: POSACONAZOLE
     Indication: Graft versus host disease
     Dosage: UNK DOSAGE AND FREQUENCY UNKNOWN
     Route: 065
  3. COTRIMOXAZOLE [Suspect]
     Active Substance: SULFAMETHOXAZOLE\TRIMETHOPRIM
     Indication: Graft versus host disease
     Dosage: DOSAGE AND FREQUENCY UNKNOWN
     Route: 065
  4. CYCLOPHOSPHAMIDE [Suspect]
     Active Substance: CYCLOPHOSPHAMIDE
     Indication: Product used for unknown indication
     Dosage: 50 MG/KG/DAY
     Route: 065
  5. LETERMOVIR [Suspect]
     Active Substance: LETERMOVIR
     Indication: Graft versus host disease
     Dosage: UNK DOSAGE AND FREQUENCY UNKNOWN
     Route: 065
  6. SIROLIMUS [Suspect]
     Active Substance: SIROLIMUS
     Indication: Graft versus host disease
     Dosage: UNK DOSAGE AND FREQUENCY UNKNOWN
     Route: 048
  7. FLUDARABINE [Concomitant]
     Active Substance: FLUDARABINE PHOSPHATE
     Dosage: 30 MG/M2/DAY ON DAYS 6 TO 2
     Route: 065
  8. TREOSULFAN [Concomitant]
     Active Substance: TREOSULFAN
     Dosage: 14 G/M2/DAY ON DAYS 6 TO 4
     Route: 065

REACTIONS (6)
  - Adenovirus reactivation [Unknown]
  - Herpes virus infection [Unknown]
  - Cytomegalovirus infection reactivation [Unknown]
  - Septic shock [Unknown]
  - Gastritis [Unknown]
  - Product use in unapproved indication [Unknown]
